FAERS Safety Report 13486733 (Version 2)
Quarter: 2017Q2

REPORT INFORMATION
  Report Type: Report from Study
  Country: IT (occurrence: IT)
  Receive Date: 20170426
  Receipt Date: 20170509
  Transmission Date: 20170830
  Serious: Yes (Other)
  Sender: FDA-Public Use
  Company Number: IT-GILEAD-2017-0268924

PATIENT
  Age: 67 Year
  Sex: Male
  Weight: 92 kg

DRUGS (2)
  1. DACLATASVIR. [Suspect]
     Active Substance: DACLATASVIR
     Indication: CHRONIC HEPATITIS C
     Dosage: 60 MG, QD
     Route: 048
     Dates: start: 20160527, end: 20160818
  2. SOFOSBUVIR [Suspect]
     Active Substance: SOFOSBUVIR
     Indication: CHRONIC HEPATITIS C
     Dosage: 400 MG, QD
     Route: 048
     Dates: start: 20160527, end: 20160818

REACTIONS (4)
  - Chronic hepatitis C [Not Recovered/Not Resolved]
  - Treatment failure [Not Recovered/Not Resolved]
  - Hepatocellular carcinoma [Not Recovered/Not Resolved]
  - Viral mutation identified [Not Recovered/Not Resolved]

NARRATIVE: CASE EVENT DATE: 20161216
